FAERS Safety Report 6649192-4 (Version None)
Quarter: 2010Q1

REPORT INFORMATION
  Report Type: 
  Country: None (occurrence: None)
  Receive Date: 20100324
  Receipt Date: 20100311
  Transmission Date: 20100710
  Serious: Yes (Congenital Anomaly)
  Sender: FDA-Public Use
  Company Number: B0639166A

PATIENT

DRUGS (3)
  1. LAMOTRIGINE [Suspect]
     Indication: EPILEPSY
     Dosage: 400MG TWICE PER DAY
  2. KEPPRA [Suspect]
     Indication: EPILEPSY
     Dosage: 2G TWICE PER DAY
  3. GABAPENTIN [Suspect]
     Indication: EPILEPSY
     Dosage: 1200MG TWICE PER DAY

REACTIONS (2)
  - DRUG EXPOSURE DURING PREGNANCY [None]
  - TALIPES [None]
